FAERS Safety Report 6128050-8 (Version None)
Quarter: 2009Q1

REPORT INFORMATION
  Report Type: 
  Country: None (occurrence: None)
  Receive Date: 20090323
  Receipt Date: 20090313
  Transmission Date: 20090719
  Serious: Yes (Other)
  Sender: FDA-Public Use
  Company Number: US-MERCK-0712USA00037

PATIENT
  Age: 53 Year
  Sex: Female

DRUGS (16)
  1. JANUMET [Suspect]
     Indication: DIABETES MELLITUS
     Route: 048
     Dates: start: 20071011, end: 20071101
  2. JANUMET [Suspect]
     Route: 048
     Dates: start: 20070521, end: 20071001
  3. JANUMET [Suspect]
     Route: 048
     Dates: start: 20071101, end: 20071213
  4. JANUMET [Suspect]
     Route: 048
     Dates: start: 20071201
  5. JANUMET [Suspect]
     Route: 048
  6. INSULIN [Concomitant]
     Route: 065
  7. GLIMEPIRIDE [Suspect]
     Route: 065
  8. LITHIUM-ASPARTAT [Concomitant]
     Indication: BIPOLAR DISORDER
     Route: 065
  9. EFFEXOR XR [Concomitant]
     Indication: BIPOLAR DISORDER
     Route: 065
  10. BYETTA [Suspect]
     Route: 065
     Dates: start: 20071129
  11. GLUCOVANCE [Suspect]
     Route: 065
  12. HUMALOG MIX 75/25 [Suspect]
     Route: 058
     Dates: start: 20071129
  13. ACTOS [Suspect]
     Indication: DIABETES MELLITUS
     Route: 048
     Dates: start: 20040902
  14. ACTOS [Suspect]
     Route: 048
     Dates: start: 20070801
  15. ACTOS [Suspect]
     Route: 048
  16. JANUVIA [Concomitant]
     Route: 048

REACTIONS (7)
  - COLD SWEAT [None]
  - DRUG INEFFECTIVE [None]
  - HYPOGLYCAEMIA [None]
  - INCORRECT DOSE ADMINISTERED [None]
  - INTENTIONAL DRUG MISUSE [None]
  - OVERDOSE [None]
  - SELF-MEDICATION [None]
